FAERS Safety Report 8811308 (Version 1)
Quarter: 2012Q4

REPORT INFORMATION
  Report Type: Spontaneous
  Country: US (occurrence: None)
  Receive Date: 20120924
  Receipt Date: 20120924
  Transmission Date: 20130627
  Serious: Yes (Other)
  Sender: FDA-Public Use
  Company Number: ACO_31980_2012

PATIENT
  Age: 46 Year
  Sex: Female
  Weight: 58 kg

DRUGS (4)
  1. AMPYRA [Suspect]
     Indication: MULTIPLE SCLEROSIS
     Route: 048
     Dates: start: 200907
  2. BACLOFEN [Concomitant]
  3. COPAXONE (GLATIRAMER ACETATE) [Concomitant]
  4. VITAMIN D3 (COLECALCIFEROL) [Concomitant]

REACTIONS (3)
  - Convulsion [None]
  - Weight decreased [None]
  - Somnambulism [None]
